FAERS Safety Report 15302230 (Version 1)
Quarter: 2018Q3

REPORT INFORMATION
  Report Type: Report from Study
  Country: US (occurrence: US)
  Receive Date: 20180821
  Receipt Date: 20180821
  Transmission Date: 20181010
  Serious: Yes (Other)
  Sender: FDA-Public Use
  Company Number: US-BAYER-2018-155099

PATIENT
  Age: 50 Year
  Sex: Female

DRUGS (1)
  1. STIVARGA [Suspect]
     Active Substance: REGORAFENIB
     Indication: COLORECTAL CANCER
     Dosage: DAILY DOSE 160 MG 21 DAYS ON 7 DAYS OFF
     Route: 048
     Dates: start: 20180712

REACTIONS (2)
  - Pollakiuria [None]
  - Blood urine present [None]

NARRATIVE: CASE EVENT DATE: 201808
